FAERS Safety Report 7443093-X (Version None)
Quarter: 2011Q2

REPORT INFORMATION
  Report Type: 
  Country: None (occurrence: None)
  Receive Date: 20110420
  Receipt Date: 20110425
  Transmission Date: 20111010
  Serious: Yes (Other)
  Sender: FDA-Public Use
  Company Number: B0713040A

PATIENT
  Age: 39 Year
  Sex: Female

DRUGS (5)
  1. FORTOVASE [Suspect]
     Indication: HIV INFECTION
     Dates: start: 20030101
  2. INTERFERON ALFA [Suspect]
     Indication: HEPATITIS C
  3. KALETRA [Suspect]
     Indication: HIV INFECTION
  4. EPZICOM [Suspect]
     Indication: HIV INFECTION
     Dates: start: 20030101
  5. RIBAVIRIN [Concomitant]

REACTIONS (4)
  - CUTANEOUS SARCOIDOSIS [None]
  - PULMONARY SARCOIDOSIS [None]
  - HAEMOLYSIS [None]
  - IMMUNE RECONSTITUTION SYNDROME [None]
